FAERS Safety Report 5316578-X (Version None)
Quarter: 2007Q2

REPORT INFORMATION
  Report Type: 
  Country: None (occurrence: None)
  Receive Date: 20070504
  Receipt Date: 20070423
  Transmission Date: 20071010
  Serious: Yes (Death)
  Sender: FDA-Public Use
  Company Number: US-JNJFOC-20070201675

PATIENT
  Sex: Male
  Weight: 9.14 kg

DRUGS (5)
  1. TOPIRAMATE [Suspect]
  2. TOPIRAMATE [Suspect]
     Indication: EPILEPSY
  3. TRILEPTAL [Concomitant]
     Indication: CONVULSION
  4. PHENOBARBITAL TAB [Concomitant]
     Indication: CONVULSION PROPHYLAXIS
  5. LEVETIRACETAM [Concomitant]
     Indication: CONVULSION PROPHYLAXIS

REACTIONS (1)
  - CONVULSION [None]
